FAERS Safety Report 4551427-9 (Version None)
Quarter: 2005Q1

REPORT INFORMATION
  Report Type: 
  Country: None (occurrence: None)
  Receive Date: 20050104
  Receipt Date: 20041223
  Transmission Date: 20050727
  Serious: Yes (Hospitalization)
  Sender: FDA-Public Use
  Company Number: E2004-04824

PATIENT
  Age: 23 Year
  Sex: Male

DRUGS (1)
  1. TUBERSOL [Suspect]
     Indication: TUBERCULIN TEST
     Route: 023
     Dates: start: 20040806

REACTIONS (3)
  - DYSAESTHESIA [None]
  - INJECTION SITE PAIN [None]
  - LYMPHADENITIS [None]
